FAERS Safety Report 7210648-7 (Version None)
Quarter: 2011Q1

REPORT INFORMATION
  Report Type: 
  Country: None (occurrence: None)
  Receive Date: 20110105
  Receipt Date: 20110103
  Transmission Date: 20110831
  Serious: No
  Sender: FDA-Public Use
  Company Number: US-PFIZER INC-2011000944

PATIENT
  Sex: Female
  Weight: 72.562 kg

DRUGS (4)
  1. ARTHROTEC [Suspect]
  2. ARTHROTEC [Suspect]
     Indication: ARTHRALGIA
     Dosage: 50\200, MG/MCG 2X/DAY
     Route: 048
     Dates: start: 20101223
  3. ENTOCORT EC [Concomitant]
     Indication: COLITIS
     Dosage: UNK
  4. ATENOLOL [Concomitant]
     Indication: HYPERTENSION
     Dosage: UNK

REACTIONS (3)
  - MUSCLE SPASMS [None]
  - PRODUCT QUALITY ISSUE [None]
  - DIARRHOEA [None]
